FAERS Safety Report 6579573-9 (Version None)
Quarter: 2010Q1

REPORT INFORMATION
  Report Type: 
  Country: None (occurrence: None)
  Receive Date: 20100212
  Receipt Date: 20100203
  Transmission Date: 20100710
  Serious: Yes (Other)
  Sender: FDA-Public Use
  Company Number: US-PFIZER INC-2010016248

PATIENT
  Sex: Female
  Weight: 47.619 kg

DRUGS (3)
  1. LYRICA [Suspect]
     Indication: NEURALGIA
     Dosage: 100 MG, 2X/DAY
     Route: 048
     Dates: start: 20100101, end: 20100118
  2. LYRICA [Suspect]
     Dosage: 50 MG, 1X/DAY
     Route: 048
     Dates: start: 20100108, end: 20100101
  3. TYLENOL-500 [Concomitant]
     Indication: ROTATOR CUFF SYNDROME
     Dosage: UNK, 3X/DAY

REACTIONS (6)
  - GAIT DISTURBANCE [None]
  - INSOMNIA [None]
  - JOINT STIFFNESS [None]
  - MYALGIA [None]
  - PAIN [None]
  - SWELLING [None]
